FAERS Safety Report 18807465 (Version 1)
Quarter: 2021Q1

REPORT INFORMATION
  Report Type: Report from Study
  Country: CA (occurrence: CA)
  Receive Date: 20210129
  Receipt Date: 20210129
  Transmission Date: 20210419
  Serious: Yes (Other)
  Sender: FDA-Public Use
  Company Number: CA-JNJFOC-20210135630

PATIENT
  Age: 14 Year
  Sex: Male
  Weight: 46.5 kg

DRUGS (2)
  1. REMICADE [Suspect]
     Active Substance: INFLIXIMAB
     Dosage: ON 21?JAN?2021 THE PATIENT RECEIVED 52ND 700MG REMICADE INFUSION
     Route: 042
     Dates: start: 20210121
  2. REMICADE [Suspect]
     Active Substance: INFLIXIMAB
     Indication: COLITIS ULCERATIVE
     Route: 042
     Dates: start: 20170912

REACTIONS (2)
  - Frequent bowel movements [Unknown]
  - Haematochezia [Unknown]

NARRATIVE: CASE EVENT DATE: 20210120
